FAERS Safety Report 12837244 (Version 1)
Quarter: 2016Q4

REPORT INFORMATION
  Report Type: Spontaneous
  Country: US (occurrence: US)
  Receive Date: 20161009
  Receipt Date: 20161009
  Transmission Date: 20170207
  Serious: No
  Sender: FDA-Public Use
  Company Number: None

PATIENT
  Age: 64 Year
  Sex: Male
  Weight: 76.5 kg

DRUGS (1)
  1. GENERIC PSEUDOPHEDRINE [Suspect]
     Active Substance: PSEUDOEPHEDRINE
     Indication: RHINORRHOEA
     Route: 048

REACTIONS (1)
  - Dysuria [None]

NARRATIVE: CASE EVENT DATE: 20160301
